FAERS Safety Report 7357545-4 (Version None)
Quarter: 2011Q1

REPORT INFORMATION
  Report Type: 
  Country: None (occurrence: None)
  Receive Date: 20110317
  Receipt Date: 20110314
  Transmission Date: 20110831
  Serious: Yes (Hospitalization)
  Sender: FDA-Public Use
  Company Number: BR-ELI_LILLY_AND_COMPANY-BR201103004583

PATIENT
  Sex: Female
  Weight: 70 kg

DRUGS (6)
  1. DIGOXIN [Concomitant]
     Indication: CARDIAC DISORDER
     Dosage: UNK MG, DAILY (1/D)
     Route: 048
     Dates: start: 20100101
  2. CARVEDILOL [Concomitant]
     Indication: TACHYCARDIA
     Dosage: UNK, DAILY (1/D)
     Route: 048
     Dates: start: 20101101
  3. METICORTEN [Concomitant]
     Indication: LUNG DISORDER
     Dosage: UNK, DAILY (1/D)
     Route: 048
     Dates: start: 20100101
  4. ALDACTONE [Concomitant]
     Dosage: UNK, DAILY (1/D)
     Route: 048
     Dates: start: 20101001
  5. WARFARIN SODIUM [Concomitant]
     Dosage: UNK, DAILY (1/D)
     Route: 048
     Dates: start: 20100901
  6. FORTEO [Suspect]
     Indication: OSTEOPOROSIS
     Dosage: 20 UG, DAILY (1/D)
     Route: 058
     Dates: start: 20080101, end: 20100201

REACTIONS (3)
  - CARDIAC DISORDER [None]
  - LUNG DISORDER [None]
  - THYROID DISORDER [None]
